FAERS Safety Report 6788832-6 (Version None)
Quarter: 2010Q2

REPORT INFORMATION
  Report Type: 
  Country: None (occurrence: None)
  Receive Date: 20100623
  Receipt Date: 20080521
  Transmission Date: 20101027
  Serious: No
  Sender: FDA-Public Use
  Company Number: US-PFIZER INC-2008044704

PATIENT
  Sex: Female

DRUGS (3)
  1. DEPO-SUBQ PROVERA 104 [Suspect]
     Indication: CONTRACEPTION
     Route: 058
     Dates: start: 20080201
  2. ANTIHYPERTENSIVES [Concomitant]
  3. DEPO-PROVERA [Concomitant]
     Route: 030
     Dates: start: 20070101, end: 20080101

REACTIONS (2)
  - SCAR [None]
  - URTICARIA [None]
